FAERS Safety Report 8233878-4 (Version None)
Quarter: 2012Q1

REPORT INFORMATION
  Report Type: 
  Country: None (occurrence: None)
  Receive Date: 20120326
  Receipt Date: 20120315
  Transmission Date: 20120608
  Serious: Yes (Hospitalization)
  Sender: FDA-Public Use
  Company Number: CA-JNJFOC-20120205657

PATIENT
  Sex: Male
  Weight: 59 kg

DRUGS (3)
  1. REMICADE [Suspect]
     Indication: CROHN'S DISEASE
     Route: 042
     Dates: start: 20100801
  2. REMICADE [Suspect]
     Route: 042
     Dates: start: 20111209
  3. REMICADE [Suspect]
     Route: 042
     Dates: start: 20100730

REACTIONS (1)
  - ABSCESS [None]
